FAERS Safety Report 6326387-0 (Version None)
Quarter: 2009Q3

REPORT INFORMATION
  Report Type: 
  Country: None (occurrence: None)
  Receive Date: 20090821
  Receipt Date: 20090811
  Transmission Date: 20100115
  Serious: Yes (Death)
  Sender: FDA-Public Use
  Company Number: 1-19498013

PATIENT
  Age: 67 Year
  Sex: Female

DRUGS (1)
  1. FENTANYL TRANSDERMAL SYSTEM [Suspect]
     Indication: SPONDYLITIS
     Dosage: 100MCG/HR EVERY 48 HR, TRANSDERMAL 2-3 YEARS
     Route: 062

REACTIONS (1)
  - INCORRECT DOSE ADMINISTERED [None]
